FAERS Safety Report 23913581 (Version 1)
Quarter: 2024Q2

REPORT INFORMATION
  Report Type: Spontaneous
  Country: US (occurrence: None)
  Receive Date: 20240529
  Receipt Date: 20240529
  Transmission Date: 20240715
  Serious: No
  Sender: FDA-Public Use
  Company Number: US-ROCHE-3572158

PATIENT
  Sex: Male

DRUGS (1)
  1. OCREVUS [Suspect]
     Active Substance: OCRELIZUMAB
     Indication: Relapsing multiple sclerosis
     Dosage: LAST INFUSION 20/NOV/2023
     Route: 065
     Dates: start: 20180604

REACTIONS (1)
  - COVID-19 [Not Recovered/Not Resolved]
